FAERS Safety Report 25144416 (Version 1)
Quarter: 2025Q2

REPORT INFORMATION
  Report Type: Spontaneous
  Country: US (occurrence: US)
  Receive Date: 20250401
  Receipt Date: 20250401
  Transmission Date: 20250716
  Serious: Yes (Death, Hospitalization)
  Sender: MYLAN
  Company Number: US-MYLANLABS-2025M1025749

PATIENT
  Age: 27 Year
  Sex: Male

DRUGS (6)
  1. METHOTREXATE (METHOTREXATE SODIUM) [Suspect]
     Active Substance: METHOTREXATE SODIUM
     Indication: Crohn^s disease
     Dosage: 25 MILLIGRAM, QW
  2. ACYCLOVIR [Suspect]
     Active Substance: ACYCLOVIR
     Indication: Disseminated varicella zoster virus infection
  3. INFLIXIMAB [Suspect]
     Active Substance: INFLIXIMAB
     Indication: Crohn^s disease
  4. CEFTRIAXONE [Concomitant]
     Active Substance: CEFTRIAXONE
     Indication: Evidence based treatment
  5. VANCOMYCIN [Concomitant]
     Active Substance: VANCOMYCIN
     Indication: Evidence based treatment
  6. ACETYLCYSTEINE [Concomitant]
     Active Substance: ACETYLCYSTEINE
     Indication: Product used for unknown indication

REACTIONS (11)
  - Disseminated varicella zoster virus infection [Fatal]
  - Drug ineffective [Fatal]
  - Encephalitis [Fatal]
  - Hepatic failure [Fatal]
  - Shock [Fatal]
  - Renal failure [Fatal]
  - Disseminated intravascular coagulation [Fatal]
  - Staphylococcal bacteraemia [Fatal]
  - Actinomyces bacteraemia [Fatal]
  - Tachyarrhythmia [Fatal]
  - Pneumonia viral [Fatal]
